FAERS Safety Report 7897186-3 (Version None)
Quarter: 2011Q4

REPORT INFORMATION
  Report Type: 
  Country: None (occurrence: None)
  Receive Date: 20111107
  Receipt Date: 20111024
  Transmission Date: 20120403
  Serious: Yes (Other)
  Sender: FDA-Public Use
  Company Number: US-ELI_LILLY_AND_COMPANY-US201110007360

PATIENT
  Sex: Female

DRUGS (7)
  1. ZETIA [Concomitant]
     Dosage: 10 MG, QD
  2. CYMBALTA [Suspect]
     Indication: STRESS
     Dosage: 20 MG, QD
     Dates: start: 20110930
  3. GLIPIZIDE [Concomitant]
     Dosage: UNK, QD
  4. ATENOLOL [Concomitant]
     Dosage: 50 MG, QD
  5. MIRAPEX [Concomitant]
     Dosage: 0.25 MG, BID
  6. EFFIENT [Suspect]
     Indication: STENT PLACEMENT
     Dosage: 10 MG, QD
     Dates: start: 20111013, end: 20111023
  7. NEXIUM [Concomitant]
     Dosage: 40 MG, QD

REACTIONS (9)
  - FEELING ABNORMAL [None]
  - CORONARY ARTERIAL STENT INSERTION [None]
  - MASS [None]
  - INSOMNIA [None]
  - ABDOMINAL PAIN UPPER [None]
  - DYSPNOEA [None]
  - DIARRHOEA [None]
  - CONTUSION [None]
  - OFF LABEL USE [None]
